FAERS Safety Report 5171396-0 (Version None)
Quarter: 2006Q4

REPORT INFORMATION
  Report Type: 
  Country: None (occurrence: None)
  Receive Date: 20061213
  Receipt Date: 20060813
  Transmission Date: 20070319
  Serious: Yes (Other)
  Sender: FDA-Public Use
  Company Number: US-AMGEN-US189903

PATIENT
  Sex: Male

DRUGS (2)
  1. ENBREL [Suspect]
     Indication: PSORIASIS
     Route: 058
     Dates: start: 20060728
  2. ENBREL [Suspect]
     Indication: ARTHRITIS

REACTIONS (7)
  - CONDITION AGGRAVATED [None]
  - MALIGNANT MELANOMA [None]
  - OEDEMA PERIPHERAL [None]
  - PSORIASIS [None]
  - PURULENT DISCHARGE [None]
  - SKIN DISCOLOURATION [None]
  - SKIN EXFOLIATION [None]
